FAERS Safety Report 18112199 (Version 1)
Quarter: 2020Q3

REPORT INFORMATION
  Report Type: Spontaneous
  Country: US (occurrence: US)
  Receive Date: 20200805
  Receipt Date: 20200805
  Transmission Date: 20201103
  Serious: No
  Sender: FDA-Public Use
  Company Number: US-DRREDDYS-USA/USA/20/0125543

PATIENT
  Age: 29 Year

DRUGS (1)
  1. ZENATANE [Suspect]
     Active Substance: ISOTRETINOIN
     Indication: PRODUCT USED FOR UNKNOWN INDICATION
     Dosage: RMA ISSUE DATE:  7/23/2020 12:00:00 AM DR. REDDY^S LABORATORIES LIMITED 30 MG
     Route: 048

REACTIONS (1)
  - Eye disorder [Unknown]
